FAERS Safety Report 5613708-7 (Version None)
Quarter: 2008Q1

REPORT INFORMATION
  Report Type: 
  Country: None (occurrence: None)
  Receive Date: 20080205
  Receipt Date: 20080125
  Transmission Date: 20080703
  Serious: Yes (Hospitalization)
  Sender: FDA-Public Use
  Company Number: JP-NOVOPROD-244441

PATIENT

DRUGS (3)
  1. NOVOSEVEN [Suspect]
     Indication: HAEMOPHILIA A WITH ANTI FACTOR VIII
     Dosage: 1.2 MG, SINGLE
     Route: 042
     Dates: start: 20010923, end: 20010923
  2. NOVOSEVEN [Suspect]
     Dosage: 33.6 MG, UNK
     Route: 042
     Dates: start: 20011022, end: 20011024
  3. INCREMIN [Concomitant]
     Indication: IRON DEFICIENCY ANAEMIA
     Dosage: 8 ML, UNK
     Route: 048
     Dates: start: 20010813

REACTIONS (1)
  - MEDICAL DEVICE COMPLICATION [None]
